FAERS Safety Report 8319256-8 (Version None)
Quarter: 2012Q2

REPORT INFORMATION
  Report Type: 
  Country: None (occurrence: None)
  Receive Date: 20120427
  Receipt Date: 20090828
  Transmission Date: 20120825
  Serious: No
  Sender: FDA-Public Use
  Company Number: US-TEVA-2009010006

PATIENT
  Sex: Female
  Weight: 47.67 kg

DRUGS (5)
  1. NUVIGIL [Suspect]
     Indication: NARCOLEPSY
     Dosage: 150 MILLIGRAM;
     Route: 048
     Dates: start: 20090715, end: 20090823
  2. MULTI-VITAMIN [Concomitant]
     Dates: start: 20090501
  3. NUVIGIL [Suspect]
     Dosage: 250 MILLIGRAM;
     Route: 048
     Dates: start: 20090824
  4. XYZAL [Concomitant]
     Dosage: 5 MILLIGRAM;
     Dates: start: 20090801
  5. SERTRALINE HYDROCHLORIDE [Concomitant]
     Dosage: 25 MILLIGRAM;
     Dates: start: 20090826

REACTIONS (3)
  - DECREASED APPETITE [None]
  - HEADACHE [None]
  - DIPLOPIA [None]
